FAERS Safety Report 7362078-5 (Version None)
Quarter: 2011Q1

REPORT INFORMATION
  Report Type: 
  Country: None (occurrence: None)
  Receive Date: 20110315
  Receipt Date: 20110315
  Transmission Date: 20110831
  Serious: Yes (Life-Threatening, Hospitalization, Other)
  Sender: FDA-Public Use
  Company Number: None

PATIENT
  Sex: Female
  Weight: 34.8 kg

DRUGS (1)
  1. ROCEPHIN [Suspect]
     Indication: UPPER RESPIRATORY TRACT INFECTION
     Dosage: ONCE IM
     Route: 030
     Dates: start: 20110131, end: 20110131

REACTIONS (7)
  - DRUG HYPERSENSITIVITY [None]
  - WHEEZING [None]
  - COUGH [None]
  - TACHYPNOEA [None]
  - URTICARIA [None]
  - DYSPNOEA [None]
  - OXYGEN SATURATION DECREASED [None]
